FAERS Safety Report 25044567 (Version 1)
Quarter: 2025Q1

REPORT INFORMATION
  Report Type: Spontaneous
  Country: US (occurrence: US)
  Receive Date: 20250306
  Receipt Date: 20250306
  Transmission Date: 20250408
  Serious: No
  Sender: ALVOGEN
  Company Number: None

PATIENT

DRUGS (1)
  1. BUPRENORPHINE HYDROCHLORIDE AND NALOXONE HYDROCHLORIDE [Suspect]
     Active Substance: BUPRENORPHINE HYDROCHLORIDE\NALOXONE HYDROCHLORIDE
     Indication: Product used for unknown indication

REACTIONS (8)
  - Migraine [Unknown]
  - Pain [Unknown]
  - Irritability [Unknown]
  - Nausea [Unknown]
  - Withdrawal syndrome [Unknown]
  - Therapeutic response changed [Unknown]
  - Product solubility abnormal [Unknown]
  - Product substitution issue [Unknown]
